FAERS Safety Report 19355555 (Version 2)
Quarter: 2021Q2

REPORT INFORMATION
  Report Type: Report from Study
  Country: JP (occurrence: JP)
  Receive Date: 20210602
  Receipt Date: 20210624
  Transmission Date: 20210717
  Serious: Yes (Other)
  Sender: FDA-Public Use
  Company Number: JP-UCBSA-2021025248

PATIENT
  Sex: Male

DRUGS (4)
  1. DIAZEPAM. [Concomitant]
     Active Substance: DIAZEPAM
     Route: 042
  2. LEVETIRACETAM. [Suspect]
     Active Substance: LEVETIRACETAM
     Indication: STATUS EPILEPTICUS
     Dosage: 500 MILLIGRAM, 2X/DAY (BID)
     Route: 041
  3. DIAZEPAM. [Concomitant]
     Active Substance: DIAZEPAM
     Indication: STATUS EPILEPTICUS
     Dosage: UNK
  4. LEVETIRACETAM. [Suspect]
     Active Substance: LEVETIRACETAM
     Indication: OFF LABEL USE
     Dosage: 2500 MILLIGRAMS BOLUS
     Route: 041

REACTIONS (6)
  - Respiratory depression [Unknown]
  - Altered state of consciousness [Unknown]
  - Transaminases increased [Recovering/Resolving]
  - Electroencephalogram abnormal [Unknown]
  - Off label use [Unknown]
  - Thrombocytopenia [Unknown]
